FAERS Safety Report 16031085 (Version 7)
Quarter: 2022Q2

REPORT INFORMATION
  Report Type: Spontaneous
  Country: US (occurrence: US)
  Receive Date: 20190304
  Receipt Date: 20220425
  Transmission Date: 20220720
  Serious: Yes (Hospitalization, Other)
  Sender: FDA-Public Use
  Company Number: US-PFIZER INC-2019084465

PATIENT
  Age: 33 Year
  Sex: Female
  Weight: 93 kg

DRUGS (10)
  1. EFFEXOR XR [Suspect]
     Active Substance: VENLAFAXINE HYDROCHLORIDE
     Indication: Depression
     Dosage: 150 MG, TWICE A DAY (IN THE MORNING AND IN THE EVENING)
     Route: 048
     Dates: start: 2003
  2. EFFEXOR XR [Suspect]
     Active Substance: VENLAFAXINE HYDROCHLORIDE
     Indication: Anxiety
     Dosage: 225 MG, DAILY WITH FOOD [150 MG IN THE MORNING (AM) AND 75 MG IN THE EVENING/BEDTIME (PM)]
     Route: 048
  3. ACETAMINOPHEN\OXYCODONE HYDROCHLORIDE\OXYCODONE TEREPHTHALATE [Concomitant]
     Active Substance: ACETAMINOPHEN\OXYCODONE HYDROCHLORIDE\OXYCODONE TEREPHTHALATE
     Dosage: UNK
     Dates: start: 2012
  4. XANAX [Concomitant]
     Active Substance: ALPRAZOLAM
     Dosage: 1 MG, AS NEEDED (1 TABLET PRN (AS NEEDED) ORALLY TID (THRICE A DAY))
     Dates: start: 2014
  5. METFORMIN [Concomitant]
     Active Substance: METFORMIN HYDROCHLORIDE
     Dosage: 100 MG
     Dates: start: 2010
  6. PRAVASTATIN [Concomitant]
     Active Substance: PRAVASTATIN
     Dosage: UNK
     Dates: start: 2010
  7. LISINOPRIL [Concomitant]
     Active Substance: LISINOPRIL
     Dosage: UNK
     Dates: start: 2010
  8. ASPIRIN [Concomitant]
     Active Substance: ASPIRIN
     Dosage: UNK
     Dates: start: 2010
  9. VENLAFAXINE [Concomitant]
     Active Substance: VENLAFAXINE HYDROCHLORIDE
     Indication: Depression
     Dosage: 225 MG, DAILY (150 MG IN THE MORNING AND 75 MG IN THE EVENING)
     Route: 048
     Dates: start: 2005, end: 201902
  10. AZITHROMYCIN [Concomitant]
     Active Substance: AZITHROMYCIN
     Dosage: 250 MG, 3X/DAY (1 TABLET 30 MINUTES BEFORE LUNCH, DINNER AND AT BEDTIME)

REACTIONS (7)
  - Seizure [Unknown]
  - Fall [Unknown]
  - Contusion [Unknown]
  - Hydrocephalus [Unknown]
  - Gait disturbance [Unknown]
  - Prescribed overdose [Unknown]
  - Off label use [Unknown]

NARRATIVE: CASE EVENT DATE: 20030101
